FAERS Safety Report 6572502-3 (Version None)
Quarter: 2010Q1

REPORT INFORMATION
  Report Type: 
  Country: None (occurrence: None)
  Receive Date: 20100205
  Receipt Date: 20100129
  Transmission Date: 20100710
  Serious: Yes (Hospitalization, Other)
  Sender: FDA-Public Use
  Company Number: SE-AMGEN-UK365224

PATIENT
  Sex: Female
  Weight: 78.6 kg

DRUGS (7)
  1. MIMPARA [Suspect]
     Indication: HYPERPARATHYROIDISM SECONDARY
     Route: 048
     Dates: start: 20070219
  2. PROGRAF [Concomitant]
     Route: 048
  3. CELLCEPT [Concomitant]
     Route: 048
  4. PREDNISOLON [Concomitant]
     Route: 048
  5. CITALOPRAM [Concomitant]
     Route: 048
  6. PLENDIL [Concomitant]
     Route: 048
  7. SODIUM BICARBONATE [Concomitant]
     Route: 048

REACTIONS (6)
  - BLOOD CREATININE INCREASED [None]
  - BLOOD PARATHYROID HORMONE INCREASED [None]
  - CALCIPHYLAXIS [None]
  - COMPLICATIONS OF TRANSPLANTED KIDNEY [None]
  - PARATHYROIDECTOMY [None]
  - RENAL FAILURE [None]
